FAERS Safety Report 26041544 (Version 1)
Quarter: 2025Q4

REPORT INFORMATION
  Report Type: Spontaneous
  Country: IN (occurrence: IN)
  Receive Date: 20251113
  Receipt Date: 20251113
  Transmission Date: 20260118
  Serious: Yes (Hospitalization)
  Sender: PFIZER
  Company Number: IN-PFIZER INC-2020078624

PATIENT
  Age: 74 Year
  Sex: Female

DRUGS (11)
  1. PALBOCICLIB [Suspect]
     Active Substance: PALBOCICLIB
     Indication: Breast cancer metastatic
     Dosage: 125 MG, CYCLIC (125 MG ONCE A DAY THEN STOP FOR 7 DAYS)
     Route: 048
     Dates: start: 20190122, end: 20190211
  2. PALBOCICLIB [Suspect]
     Active Substance: PALBOCICLIB
     Dosage: 125 MG, CYCLIC (125 MG ONCE A DAY THEN STOP FOR 7 DAYS)
     Route: 048
     Dates: start: 20190221, end: 20190313
  3. PALBOCICLIB [Suspect]
     Active Substance: PALBOCICLIB
     Dosage: 125 MG, CYCLIC (125 MG ONCE A DAY THEN STOP FOR 7 DAYS)
     Route: 048
     Dates: start: 20190326, end: 20190415
  4. PALBOCICLIB [Suspect]
     Active Substance: PALBOCICLIB
     Dosage: 125 MG, CYCLIC (125 MG ONCE A DAY THEN STOP FOR 7 DAYS)
     Route: 048
     Dates: start: 20190427, end: 20190510
  5. PALBOCICLIB [Suspect]
     Active Substance: PALBOCICLIB
     Dosage: 125 MG, CYCLIC (125 MG ONCE A DAY THEN STOP FOR 7 DAYS)
     Route: 048
     Dates: start: 20190615, end: 20190705
  6. PALBOCICLIB [Suspect]
     Active Substance: PALBOCICLIB
     Dosage: 125 MG, CYCLIC (125 MG ONCE A DAY THEN STOP FOR 7 DAYS)
     Route: 048
     Dates: start: 20191207, end: 20191227
  7. PALBOCICLIB [Suspect]
     Active Substance: PALBOCICLIB
     Dosage: 125 MG, CYCLIC (125 MG ONCE A DAY THEN STOP FOR 7 DAYS)
     Route: 048
     Dates: start: 20200119
  8. LETROZOLE [Concomitant]
     Active Substance: LETROZOLE
     Dosage: 2.5 MG, CYCLIC (0-1-0 FOR 28 DAYS)
  9. CALCIUM FORTE [Concomitant]
     Dosage: UNK, 2X/DAY (1-0-1)
  10. NEUROBION FORTE [Concomitant]
     Active Substance: CYANOCOBALAMIN\PYRIDOXINE HYDROCHLORIDE\THIAMINE DISULFIDE
     Dosage: UNK, 2X/DAY (1-0-1)
  11. OSTEOPHOS [Concomitant]
     Dosage: 70 MG, WEEKLY

REACTIONS (5)
  - Illness [Unknown]
  - Neutrophil count decreased [Unknown]
  - Viral infection [Unknown]
  - Asthenia [Unknown]
  - Pleural effusion [Unknown]

NARRATIVE: CASE EVENT DATE: 20190312
